FAERS Safety Report 24567905 (Version 2)
Quarter: 2025Q2

REPORT INFORMATION
  Report Type: Report from Study
  Country: JP (occurrence: JP)
  Receive Date: 20241031
  Receipt Date: 20250626
  Transmission Date: 20250717
  Serious: Yes (Other)
  Sender: ROCHE
  Company Number: JP-CHUGAI-2024037303

PATIENT
  Age: 48 Year
  Sex: Male
  Weight: 84 kg

DRUGS (11)
  1. VABYSMO [Suspect]
     Active Substance: FARICIMAB-SVOA
     Indication: Diabetic retinal oedema
     Route: 031
     Dates: start: 20230418, end: 20230418
  2. VABYSMO [Suspect]
     Active Substance: FARICIMAB-SVOA
     Route: 031
     Dates: start: 20230425, end: 20230425
  3. VABYSMO [Suspect]
     Active Substance: FARICIMAB-SVOA
     Route: 031
     Dates: start: 20230704, end: 20230704
  4. VABYSMO [Suspect]
     Active Substance: FARICIMAB-SVOA
     Route: 031
     Dates: start: 20230711, end: 20230711
  5. VABYSMO [Suspect]
     Active Substance: FARICIMAB-SVOA
     Route: 031
     Dates: start: 20230919, end: 20230919
  6. VABYSMO [Suspect]
     Active Substance: FARICIMAB-SVOA
     Route: 031
     Dates: start: 20230926, end: 20230926
  7. VABYSMO [Suspect]
     Active Substance: FARICIMAB-SVOA
     Route: 031
     Dates: start: 20231205, end: 20231205
  8. VABYSMO [Suspect]
     Active Substance: FARICIMAB-SVOA
     Route: 031
     Dates: start: 20231212, end: 20231212
  9. VABYSMO [Suspect]
     Active Substance: FARICIMAB-SVOA
     Route: 031
     Dates: start: 20240213, end: 20240213
  10. VABYSMO [Suspect]
     Active Substance: FARICIMAB-SVOA
     Route: 031
     Dates: start: 20240416, end: 20240416
  11. BEOVU [Suspect]
     Active Substance: BROLUCIZUMAB-DBLL
     Indication: Product used for unknown indication
     Route: 065

REACTIONS (1)
  - Cerebral haemorrhage [Recovering/Resolving]

NARRATIVE: CASE EVENT DATE: 20240509
